FAERS Safety Report 13393065 (Version 1)
Quarter: 2017Q1

REPORT INFORMATION
  Report Type: Spontaneous
  Country: ES (occurrence: ES)
  Receive Date: 20170331
  Receipt Date: 20170331
  Transmission Date: 20170429
  Serious: Yes (Life-Threatening, Hospitalization)
  Sender: FDA-Public Use
  Company Number: ES-JNJFOC-20170332558

PATIENT
  Age: 70 Year
  Sex: Male

DRUGS (1)
  1. IMBRUVICA [Suspect]
     Active Substance: IBRUTINIB
     Indication: CHRONIC LYMPHOCYTIC LEUKAEMIA
     Dosage: 420 MG
     Route: 048
     Dates: start: 20161101, end: 20170303

REACTIONS (2)
  - Paraparesis [Recovering/Resolving]
  - Spinal cord haematoma [Recovering/Resolving]

NARRATIVE: CASE EVENT DATE: 20170301
